FAERS Safety Report 4978419-X (Version None)
Quarter: 2006Q1

REPORT INFORMATION
  Report Type: 
  Country: None (occurrence: None)
  Receive Date: 20060228
  Receipt Date: 20050322
  Transmission Date: 20060701
  Serious: Yes (Death)
  Sender: FDA-Public Use
  Company Number: 05P-163-0295007-00

PATIENT
  Age: 61 Year
  Sex: Female

DRUGS (3)
  1. DILAUDID [Suspect]
     Indication: PAIN
     Dosage: 0.5 MG, INTRAVENOUS
     Route: 042
     Dates: start: 20040526, end: 20040526
  2. OXYCODONE HCL [Suspect]
     Indication: PAIN
     Dosage: 10 MG, PER ORAL
     Route: 048
     Dates: start: 20040526, end: 20040526
  3. TEMAZEPAM [Suspect]
     Dosage: 5 MG
     Dates: start: 20040526, end: 20040526

REACTIONS (1)
  - DEATH [None]
